FAERS Safety Report 4737938-1 (Version None)
Quarter: 2005Q3

REPORT INFORMATION
  Report Type: 
  Country: None (occurrence: None)
  Receive Date: 20050805
  Receipt Date: 20050720
  Transmission Date: 20060218
  Serious: Yes (Other)
  Sender: FDA-Public Use
  Company Number: B0386080A

PATIENT
  Age: 83 Year
  Sex: Female

DRUGS (2)
  1. AUGMENTIN '250' [Suspect]
     Indication: SPINAL ANAESTHESIA
  2. BUPIVACAINE [Suspect]
     Indication: SPINAL ANAESTHESIA

REACTIONS (3)
  - ANAPHYLACTIC SHOCK [None]
  - ELECTROMECHANICAL DISSOCIATION [None]
  - VENTRICULAR FIBRILLATION [None]
